FAERS Safety Report 5607695-5 (Version None)
Quarter: 2008Q1

REPORT INFORMATION
  Report Type: 
  Country: None (occurrence: None)
  Receive Date: 20080111
  Receipt Date: 20070928
  Transmission Date: 20080703
  Serious: Yes (Other)
  Sender: FDA-Public Use
  Company Number: HQWYE167613OCT03

PATIENT
  Age: 57 Year
  Sex: Female
  Weight: 69.46 kg

DRUGS (6)
  1. PREMPRO [Suspect]
     Indication: HORMONE REPLACEMENT THERAPY
     Dosage: DAILY, ORAL
     Route: 048
  2. CYCRIN [Suspect]
  3. ESTRATEST H.S. [Suspect]
  4. MEDROXYPROGESTERONE [Suspect]
  5. OGEN [Suspect]
  6. PROVERA [Suspect]
     Indication: HORMONE REPLACEMENT THERAPY
     Dosage: DAILY, ORAL
     Route: 048

REACTIONS (2)
  - BREAST CANCER [None]
  - DRUG INEFFECTIVE [None]
